FAERS Safety Report 7403959-3 (Version None)
Quarter: 2011Q2

REPORT INFORMATION
  Report Type: 
  Country: None (occurrence: None)
  Receive Date: 20110408
  Receipt Date: 20091014
  Transmission Date: 20111010
  Serious: Yes (Death, Hospitalization, Other)
  Sender: FDA-Public Use
  Company Number: US-BAYER-201038706NA

PATIENT
  Age: 63 Year
  Sex: Male
  Weight: 78 kg

DRUGS (40)
  1. PREVACID [Concomitant]
     Dosage: 60 MG, QD
     Route: 048
     Dates: start: 20010921, end: 20010924
  2. VASOPRESSIN [Concomitant]
     Dosage: TITRATED
     Dates: start: 20010925, end: 20010926
  3. LANOXIN [Concomitant]
     Dosage: 0.125MG EVERY
     Dates: end: 20010924
  4. LEVAQUIN [Concomitant]
     Dosage: UNK
     Dates: start: 20010921
  5. DOXYCYCLINE [Concomitant]
     Dosage: 100 MG, BID X10DAYS
     Dates: start: 20010425
  6. PRIMACOR [Concomitant]
     Dosage: 0.5MCG/KG/MIN
     Route: 042
     Dates: start: 20010925, end: 20010926
  7. ZESTRIL [Concomitant]
     Dosage: 5 MG, QD
     Route: 048
     Dates: start: 20010530, end: 20010924
  8. GLYBURIDE [Concomitant]
     Indication: DIABETES MELLITUS
     Dosage: 10 MG, BID
     Route: 048
     Dates: start: 20010924, end: 20010924
  9. NEO-SYNEPHRINOL [Concomitant]
     Dosage: 500MCG
     Route: 042
     Dates: start: 20010925, end: 20010925
  10. ISOFLURANE [Concomitant]
     Dosage: TITRATED/INHALATION
     Dates: start: 20010925, end: 20010926
  11. TOPROL-XL [Concomitant]
     Dosage: 50 MG, UNK
     Route: 048
     Dates: start: 20010501, end: 20010924
  12. FLAGYL [Concomitant]
     Dosage: UNK
     Dates: start: 20010401
  13. AMIODARONE [Concomitant]
     Dosage: 200 MG, UNK
     Route: 048
     Dates: end: 20010912
  14. SOLU-CORTEF [Concomitant]
     Dosage: 125 MG, UNK
     Dates: start: 20010925, end: 20010925
  15. THIOPENTAL SODIUM [Concomitant]
     Dosage: 250 MG, UNK
     Route: 042
     Dates: start: 20010925, end: 20010925
  16. PANCURONIUM BROMIDE [Concomitant]
     Dosage: 10 MG, UNK
     Route: 042
     Dates: start: 20010925, end: 20010926
  17. ANCEF [Concomitant]
     Dosage: MULTIPLE DOSES
     Dates: start: 20010925, end: 20010927
  18. EPHEDRINE [Concomitant]
     Dosage: 60 MG, UNK
     Route: 042
     Dates: start: 20010925, end: 20010925
  19. PROTAMINE SULFATE [Concomitant]
     Dosage: 350 MG, UNK
     Route: 042
     Dates: start: 20010925, end: 20010925
  20. LEVOPHED [Concomitant]
     Dosage: TITRATED
     Route: 042
     Dates: start: 20010925, end: 20010928
  21. NITROGLYCERIN [Concomitant]
     Dosage: TITRATED
     Dates: start: 20010925, end: 20010926
  22. PROTONIX [Concomitant]
     Dosage: 40 MG, QD
     Dates: end: 20010920
  23. HEPARIN [Concomitant]
     Dosage: MULTIPLE DOSES
     Route: 042
     Dates: start: 20010921, end: 20010925
  24. CEPHALEXIN [Concomitant]
     Dosage: 500 MG, X7DAYS
     Route: 048
     Dates: start: 20010726, end: 20010802
  25. TRASYLOL [Suspect]
     Indication: SURGERY
     Dosage: 50 ML, Q1HR
     Dates: start: 20010926, end: 20010927
  26. TRASYLOL [Suspect]
     Indication: FASCIOTOMY
  27. PLAVIX [Concomitant]
     Dosage: 75 MG, QD
     Route: 048
     Dates: end: 20010920
  28. LEVOXYL [Concomitant]
     Dosage: 50MCG DAILY
     Dates: end: 20010924
  29. VERSED [Concomitant]
     Dosage: MULTIPLE DOSES
     Route: 042
     Dates: start: 20010921, end: 20010926
  30. FENTANYL [Concomitant]
     Dosage: MULTIPLE DOSES
     Route: 042
     Dates: start: 20010921, end: 20010926
  31. FUROSEMIDE [Concomitant]
     Dosage: 20 MG, UNK
     Route: 042
     Dates: start: 20010925, end: 20010925
  32. CALCIUM CHLORIDE [Concomitant]
     Dosage: 3 G, UNK
     Route: 042
     Dates: start: 20010925, end: 20010926
  33. LASIX [Concomitant]
     Dosage: 40 MG, QD
     Route: 048
     Dates: end: 20010920
  34. PACERONE [Concomitant]
     Dosage: 200 MG, QD
     Route: 048
     Dates: end: 20010923
  35. ACETYLSALICYLIC ACID SRT [Concomitant]
     Dosage: 325 MG, QD
     Route: 048
     Dates: end: 20010924
  36. MUCOMYST [Concomitant]
     Indication: RENAL FAILURE CHRONIC
     Dosage: 600 MG, Q12H
     Route: 048
     Dates: start: 20010920, end: 20010924
  37. HEPARIN [Concomitant]
     Dosage: MULTIPLE DOSES
     Route: 058
     Dates: start: 20010921, end: 20010925
  38. GEMFIBROZIL [Concomitant]
     Dosage: 600 MG, BID
     Route: 048
     Dates: start: 20010924, end: 20010924
  39. AMIODARONE [Concomitant]
     Dosage: 200 MG, UNK
     Route: 048
     Dates: end: 20010912
  40. EPINEPHRINE [Concomitant]
     Dosage: TITRATED
     Route: 042
     Dates: start: 20010925, end: 20010926

REACTIONS (14)
  - INJURY [None]
  - ANXIETY [None]
  - UNEVALUABLE EVENT [None]
  - PAIN [None]
  - DEPRESSION [None]
  - MULTI-ORGAN FAILURE [None]
  - FEAR [None]
  - DEATH [None]
  - RENAL INJURY [None]
  - RENAL FAILURE [None]
  - NERVOUSNESS [None]
  - FEAR OF DEATH [None]
  - ANHEDONIA [None]
  - EMOTIONAL DISTRESS [None]
